FAERS Safety Report 7290469-X (Version None)
Quarter: 2011Q1

REPORT INFORMATION
  Report Type: 
  Country: None (occurrence: None)
  Receive Date: 20110214
  Receipt Date: 20110209
  Transmission Date: 20110831
  Serious: No
  Sender: FDA-Public Use
  Company Number: US-PFIZER INC-2011029660

PATIENT
  Sex: Female
  Weight: 68.027 kg

DRUGS (4)
  1. PRISTIQ [Suspect]
     Indication: ANXIETY
     Dosage: 50 MG, 1X/DAY
     Route: 048
  2. GIANVI [Concomitant]
     Indication: CONTRACEPTION
     Dosage: 3/0.02
     Route: 048
  3. PHENTERMINE HYDROCHLORIDE [Concomitant]
     Indication: WEIGHT CONTROL
     Dosage: 37.5 MG, ALTERNATE DAY
     Route: 048
  4. PRISTIQ [Suspect]
     Indication: DEPRESSION

REACTIONS (2)
  - VISUAL IMPAIRMENT [None]
  - HEADACHE [None]
